FAERS Safety Report 4368996-4 (Version None)
Quarter: 2004Q2

REPORT INFORMATION
  Report Type: 
  Country: None (occurrence: None)
  Receive Date: 20040602
  Receipt Date: 20040602
  Transmission Date: 20050107
  Serious: No
  Sender: FDA-Public Use
  Company Number: None

PATIENT
  Age: 56 Year
  Sex: Female
  Weight: 48 kg

DRUGS (2)
  1. DEFEROXAMINE 2 GM ABBOTT 00074-2337-25 [Suspect]
     Indication: BLOOD IRON INCREASED
     Dosage: 1 G SQ 5X/WK
     Route: 058
     Dates: start: 20040521
  2. DEFEROXAMINE 500 MG   ABBOTT 00074-2336-40 [Suspect]

REACTIONS (4)
  - INJECTION SITE NODULE [None]
  - INJECTION SITE PAIN [None]
  - INJECTION SITE PRURITUS [None]
  - PHARMACEUTICAL PRODUCT COMPLAINT [None]
